FAERS Safety Report 7736342-1 (Version None)
Quarter: 2011Q3

REPORT INFORMATION
  Report Type: 
  Country: None (occurrence: None)
  Receive Date: 20110908
  Receipt Date: 20110824
  Transmission Date: 20111222
  Serious: Yes (Hospitalization)
  Sender: FDA-Public Use
  Company Number: US-CELGENEUS-163-21880-11082865

PATIENT
  Sex: Male

DRUGS (1)
  1. REVLIMID [Suspect]
     Indication: MULTIPLE MYELOMA
     Dosage: 10 MILLIGRAM
     Route: 048
     Dates: start: 20110726, end: 20110818

REACTIONS (4)
  - PLATELET COUNT DECREASED [None]
  - LUNG DISORDER [None]
  - WHITE BLOOD CELL COUNT DECREASED [None]
  - ASTHENIA [None]
